FAERS Safety Report 24689173 (Version 1)
Quarter: 2024Q4

REPORT INFORMATION
  Report Type: Spontaneous
  Country: FR (occurrence: FR)
  Receive Date: 20241203
  Receipt Date: 20241203
  Transmission Date: 20250115
  Serious: Yes (Hospitalization, Other)
  Sender: CELLTRION
  Company Number: None

PATIENT

DRUGS (2)
  1. RITUXIMAB [Suspect]
     Active Substance: RITUXIMAB
     Indication: Dermatomyositis
     Dosage: 1 G, TOTAL (SINGLE)
     Route: 042
     Dates: start: 20230925, end: 20230925
  2. RITUXIMAB [Suspect]
     Active Substance: RITUXIMAB
     Dosage: 1 G, TOTAL (SINGLE)
     Route: 042
     Dates: start: 20240311, end: 20240311

REACTIONS (2)
  - Agranulocytosis [Recovered/Resolved]
  - Intentional product use issue [Unknown]

NARRATIVE: CASE EVENT DATE: 20240518
